FAERS Safety Report 17575848 (Version 1)
Quarter: 2020Q1

REPORT INFORMATION
  Report Type: Spontaneous
  Country: US (occurrence: US)
  Receive Date: 20200323
  Receipt Date: 20200323
  Transmission Date: 20200409
  Serious: Yes (Congenital Anomaly, Other)
  Sender: FDA-Public Use
  Company Number: None

PATIENT
  Age: 40 Year
  Sex: Male
  Weight: 85.5 kg

DRUGS (1)
  1. LEOPARD MIRACLE HONEY [Suspect]
     Active Substance: DIETARY SUPPLEMENT
     Indication: LIBIDO DISORDER
     Dosage: ?          QUANTITY:12 12 EACH BOX;?
     Route: 048
     Dates: start: 20200323, end: 20200323

REACTIONS (2)
  - Dyspnoea [None]
  - Visual impairment [None]

NARRATIVE: CASE EVENT DATE: 20200323
